FAERS Safety Report 8921099 (Version 1)
Quarter: 2012Q4

REPORT INFORMATION
  Report Type: Report from Study
  Country: CA (occurrence: CA)
  Receive Date: 20121121
  Receipt Date: 20121121
  Transmission Date: 20130627
  Serious: Yes (Other)
  Sender: FDA-Public Use
  Company Number: CA-ABBOTT-12P-028-0995895-00

PATIENT
  Sex: Male

DRUGS (3)
  1. HUMIRA [Suspect]
     Indication: INTESTINAL FISTULA
     Route: 058
     Dates: start: 20110731, end: 201206
  2. HUMIRA [Suspect]
     Indication: CROHN^S DISEASE
  3. KEFLEX [Concomitant]
     Indication: PRODUCT USED FOR UNKNOWN INDICATION
     Dates: start: 20120101, end: 20120106

REACTIONS (4)
  - Azotaemia [Unknown]
  - Crohn^s disease [Unknown]
  - Dehydration [Unknown]
  - Pyrexia [Unknown]
